FAERS Safety Report 23816306 (Version 4)
Quarter: 2025Q1

REPORT INFORMATION
  Report Type: Report from Study
  Country: US (occurrence: US)
  Receive Date: 20240503
  Receipt Date: 20250328
  Transmission Date: 20250409
  Serious: Yes (Other)
  Sender: BRISTOL-MYERS SQUIBB COMPANY
  Company Number: US-BRISTOL-MYERS SQUIBB COMPANY-2024-069290

PATIENT
  Age: 67 Year
  Sex: Female
  Weight: 76.7 kg

DRUGS (23)
  1. REVLIMID [Suspect]
     Active Substance: LENALIDOMIDE
     Indication: Plasma cell myeloma
     Route: 048
  2. REVLIMID [Suspect]
     Active Substance: LENALIDOMIDE
     Route: 048
     Dates: start: 202308
  3. REVLIMID [Suspect]
     Active Substance: LENALIDOMIDE
     Route: 048
     Dates: start: 202308
  4. REVLIMID [Suspect]
     Active Substance: LENALIDOMIDE
     Route: 048
     Dates: start: 202308
  5. REVLIMID [Suspect]
     Active Substance: LENALIDOMIDE
     Route: 048
     Dates: start: 202308
  6. REVLIMID [Suspect]
     Active Substance: LENALIDOMIDE
     Route: 048
     Dates: start: 202308
  7. REVLIMID [Suspect]
     Active Substance: LENALIDOMIDE
     Dosage: DAILY FOR 21 DAYS ON A 28 DAY CYCLE
     Route: 048
  8. ROSUVASTATIN CALCIUM [Concomitant]
     Active Substance: ROSUVASTATIN CALCIUM
     Indication: Product used for unknown indication
  9. ANASTROZOLE [Concomitant]
     Active Substance: ANASTROZOLE
     Indication: Product used for unknown indication
  10. DEXAMETHASONE [Concomitant]
     Active Substance: DEXAMETHASONE
     Indication: Product used for unknown indication
  11. FUROSEMIDE [Concomitant]
     Active Substance: FUROSEMIDE
     Indication: Product used for unknown indication
  12. ACYCLOVIR [Concomitant]
     Active Substance: ACYCLOVIR
     Indication: Product used for unknown indication
  13. AZITHROMYCIN [Concomitant]
     Active Substance: AZITHROMYCIN
     Indication: Product used for unknown indication
  14. LEVOCETIRIZINE DIHYDROCHLORIDE [Concomitant]
     Active Substance: LEVOCETIRIZINE DIHYDROCHLORIDE
     Indication: Product used for unknown indication
  15. TRAMADOL HCL [Concomitant]
     Active Substance: TRAMADOL HYDROCHLORIDE
     Indication: Product used for unknown indication
  16. CONSTULOSE [Concomitant]
     Active Substance: LACTULOSE
     Indication: Product used for unknown indication
  17. GABAPENTIN [Concomitant]
     Active Substance: GABAPENTIN
     Indication: Product used for unknown indication
  18. BENZONATATE [Concomitant]
     Active Substance: BENZONATATE
     Indication: Product used for unknown indication
  19. LEVOFLOXACIN [Concomitant]
     Active Substance: LEVOFLOXACIN
     Indication: Product used for unknown indication
  20. XYZAL [Concomitant]
     Active Substance: LEVOCETIRIZINE DIHYDROCHLORIDE
     Indication: Product used for unknown indication
  21. VITAMIN D3 [Concomitant]
     Active Substance: CHOLECALCIFEROL
     Indication: Product used for unknown indication
  22. VITAMIN D2 [Concomitant]
     Active Substance: ERGOCALCIFEROL
     Indication: Product used for unknown indication
  23. FLUTICASONE PROPIONATE [Concomitant]
     Active Substance: FLUTICASONE PROPIONATE
     Indication: Product used for unknown indication

REACTIONS (11)
  - Constipation [Not Recovered/Not Resolved]
  - Fatigue [Unknown]
  - Peripheral swelling [Recovered/Resolved]
  - Abdominal discomfort [Unknown]
  - Nasopharyngitis [Unknown]
  - Cough [Recovered/Resolved]
  - Respiratory tract congestion [Recovered/Resolved]
  - Back pain [Unknown]
  - Pain [Unknown]
  - Intrauterine infection [Unknown]
  - Faeces discoloured [Unknown]

NARRATIVE: CASE EVENT DATE: 20240812
